FAERS Safety Report 7544236-X (Version None)
Quarter: 2011Q2

REPORT INFORMATION
  Report Type: 
  Country: None (occurrence: None)
  Receive Date: 20110613
  Receipt Date: 20070813
  Transmission Date: 20111010
  Serious: Yes (Hospitalization)
  Sender: FDA-Public Use
  Company Number: PHFR2007GB02435

PATIENT
  Sex: Male

DRUGS (1)
  1. CLOZAPINE [Suspect]
     Indication: SCHIZOPHRENIA
     Route: 048
     Dates: start: 19950524

REACTIONS (6)
  - APPENDICITIS [None]
  - POSTOPERATIVE WOUND INFECTION [None]
  - ABDOMINAL DISTENSION [None]
  - ABDOMINAL PAIN [None]
  - INTESTINAL OBSTRUCTION [None]
  - BODY TEMPERATURE INCREASED [None]
